FAERS Safety Report 8531809-0 (Version None)
Quarter: 2012Q3

REPORT INFORMATION
  Report Type: 
  Country: None (occurrence: None)
  Receive Date: 20120711
  Receipt Date: 20120626
  Transmission Date: 20120928
  Serious: Yes (Hospitalization)
  Sender: FDA-Public Use
  Company Number: 2012SGN00279

PATIENT
  Age: 46 Year
  Sex: Female
  Weight: 43.5 kg

DRUGS (7)
  1. BRENTUXIMAB VEDOTIN (PLACEBO (BRENTUXIMAB VEDOTIN (PLACEBO BRENTUXIMAB [Suspect]
     Indication: HODGKIN'S DISEASE
     Dosage: 1.8 MG/KG, Q21D, INTRAVENOUS
     Route: 042
     Dates: start: 20120412, end: 20120523
  2. ETILEFRINE [Concomitant]
  3. POTASSIUM (POTASSIUM CHLORIDE) [Concomitant]
  4. ACYCLOVIR [Concomitant]
  5. SULFAMETHOXAZOLE AND TRIMETHOPRIM [Concomitant]
  6. MEGESTROL ACETATE [Concomitant]
  7. ONDANSETRON [Concomitant]

REACTIONS (2)
  - ASTHENIA [None]
  - TACHYCARDIA [None]
